FAERS Safety Report 7502894-X (Version None)
Quarter: 2011Q2

REPORT INFORMATION
  Report Type: 
  Country: None (occurrence: None)
  Receive Date: 20110525
  Receipt Date: 20100920
  Transmission Date: 20111010
  Serious: No
  Sender: FDA-Public Use
  Company Number: US-NOVEN-ALL1-2010-04525

PATIENT
  Sex: Female
  Weight: 68.027 kg

DRUGS (2)
  1. DAYTRANA [Suspect]
     Dosage: UNK MG, 1X/DAY:QD (ONE AND A HALF 10 MG PATCH)
     Route: 062
     Dates: start: 20100826
  2. DAYTRANA [Suspect]
     Dosage: 10 MG, 1X/DAY:QD
     Route: 062
     Dates: start: 20100821, end: 20100825

REACTIONS (6)
  - DRUG INEFFECTIVE [None]
  - DECREASED APPETITE [None]
  - PRODUCT QUALITY ISSUE [None]
  - WRONG TECHNIQUE IN DRUG USAGE PROCESS [None]
  - DRUG PRESCRIBING ERROR [None]
  - DRUG ADMINISTERED AT INAPPROPRIATE SITE [None]
